FAERS Safety Report 8065650-2 (Version None)
Quarter: 2012Q1

REPORT INFORMATION
  Report Type: 
  Country: None (occurrence: None)
  Receive Date: 20120124
  Receipt Date: 20120118
  Transmission Date: 20120608
  Serious: Yes (Hospitalization)
  Sender: FDA-Public Use
  Company Number: TW-SANOFI-AVENTIS-2012SA003939

PATIENT

DRUGS (4)
  1. ERBITUX [Suspect]
     Route: 042
  2. FLUOROURACIL [Suspect]
     Route: 042
  3. OXALIPLATIN [Suspect]
     Route: 042
  4. LEUCOVORIN CALCIUM [Suspect]
     Route: 042

REACTIONS (2)
  - BILE DUCT OBSTRUCTION [None]
  - PANCREATIC DISORDER [None]
